FAERS Safety Report 6342072-3 (Version None)
Quarter: 2009Q3

REPORT INFORMATION
  Report Type: 
  Country: None (occurrence: None)
  Receive Date: 20090903
  Receipt Date: 20090826
  Transmission Date: 20100115
  Serious: Yes (Hospitalization)
  Sender: FDA-Public Use
  Company Number: GXKR2009CH09676

PATIENT
  Age: 64 Year
  Sex: Female

DRUGS (3)
  1. AMOXICILLIN SODIUM+POTASSIUM CLAVULANATE (NGX)(AMOXICILLIN, CLAVULANAT [Suspect]
     Indication: WOUND INFECTION
     Dosage: 1000 MG, BID, ORAL
     Route: 048
     Dates: start: 20090523, end: 20090526
  2. PULMICORT [Concomitant]
  3. FORMOTEROL (FORMOTEROL) [Concomitant]

REACTIONS (4)
  - ANGIOPATHY [None]
  - PERIPHERAL COLDNESS [None]
  - RAYNAUD'S PHENOMENON [None]
  - SKIN DISCOLOURATION [None]
